FAERS Safety Report 7439543-5 (Version None)
Quarter: 2011Q2

REPORT INFORMATION
  Report Type: 
  Country: None (occurrence: None)
  Receive Date: 20110427
  Receipt Date: 20110421
  Transmission Date: 20111010
  Serious: Yes (Death, Hospitalization, Other)
  Sender: FDA-Public Use
  Company Number: FR-MPIJNJ-2011-01286

PATIENT

DRUGS (6)
  1. ELISOR [Concomitant]
     Dosage: 20 MG, UNK
     Route: 048
  2. VELCADE [Suspect]
     Indication: MULTIPLE MYELOMA
     Dosage: 1.3 MG/M2, CYCLIC
     Route: 042
     Dates: start: 20101220, end: 20101230
  3. DEXAMETHASONE [Suspect]
     Indication: MULTIPLE MYELOMA
     Dosage: 40 MG, UNK
     Route: 042
     Dates: start: 20101201, end: 20110104
  4. THALIDOMIDE [Suspect]
     Indication: MULTIPLE MYELOMA
     Dosage: 100 MG, UNK
     Dates: start: 20101204
  5. TENORMIN [Concomitant]
     Indication: HYPERTENSION
     Dosage: 100 MG, UNK
     Route: 048
  6. LERCAN [Concomitant]
     Dosage: 20 MG, UNK
     Route: 048

REACTIONS (3)
  - LUNG DISORDER [None]
  - ACUTE RESPIRATORY DISTRESS SYNDROME [None]
  - HYPERTHERMIA [None]
